FAERS Safety Report 6162691-7 (Version None)
Quarter: 2009Q2

REPORT INFORMATION
  Report Type: 
  Country: None (occurrence: None)
  Receive Date: 20090417
  Receipt Date: 20090403
  Transmission Date: 20091009
  Serious: Yes (Other)
  Sender: FDA-Public Use
  Company Number: 6044884

PATIENT
  Age: 54 Year
  Sex: Female

DRUGS (11)
  1. LEVOTHYROXINE SODIUM [Suspect]
     Dosage: 6 GM (2 GM,3 IN 1 D)
  2. TRYPTOPHAN, L-(TRYPTOPHAN, L-) [Suspect]
     Indication: MAJOR DEPRESSION
     Dosage: (125 MCG,IN THE MORNING)
  3. CLOMIPRAMINE HCL [Suspect]
     Indication: MAJOR DEPRESSION
     Dosage: (250 MG,IN THE MORNING, ORAL
     Route: 048
  4. LITHIUM CARBONATE [Suspect]
     Indication: MAJOR DEPRESSION
     Dosage: (800 MG,AT NIGHT)
  5. QUETIAPINE FUMARATE [Suspect]
     Indication: MAJOR DEPRESSION
     Dosage: (800 MG,AT NIGHT)
  6. TRICYCLIC ANTIDEPRESSANTS [Concomitant]
  7. ETOMIDATE (16 MG) (ETOMIDATE) [Concomitant]
  8. SUXAMETHONIUM (40 MG) (SUXAMETHONIUM) [Concomitant]
  9. SEROTONIN REUPTAKE INHIBITORS [Concomitant]
  10. LAMOTRIGINE [Concomitant]
  11. ANTIPSYCHOTICS [Concomitant]

REACTIONS (4)
  - DEPRESSION [None]
  - GRAND MAL CONVULSION [None]
  - HEART RATE INCREASED [None]
  - STATUS EPILEPTICUS [None]
